FAERS Safety Report 21909253 (Version 1)
Quarter: 2023Q1

REPORT INFORMATION
  Report Type: Spontaneous
  Country: US (occurrence: None)
  Receive Date: 20230124
  Receipt Date: 20230124
  Transmission Date: 20230417
  Serious: No
  Sender: FDA-Public Use
  Company Number: None

PATIENT
  Sex: Female

DRUGS (2)
  1. VIBERZI [Suspect]
     Active Substance: ELUXADOLINE
     Indication: Panic disorder
     Dosage: 75 MG ORAL??TAKE 1 TABLET BY MOUTH DAILY
     Route: 048
     Dates: start: 20220812
  2. VIBERZI [Suspect]
     Active Substance: ELUXADOLINE
     Dosage: FREQUENCY : DAILY;?
     Route: 048

REACTIONS (1)
  - Hospitalisation [None]
